FAERS Safety Report 18051211 (Version 2)
Quarter: 2020Q3

REPORT INFORMATION
  Report Type: Spontaneous
  Country: US (occurrence: US)
  Receive Date: 20200721
  Receipt Date: 20200730
  Transmission Date: 20201103
  Serious: Yes (Other)
  Sender: FDA-Public Use
  Company Number: US-ROCHE-2642614

PATIENT
  Sex: Female
  Weight: 76 kg

DRUGS (5)
  1. RITUXAN [Suspect]
     Active Substance: RITUXIMAB
     Indication: OCULAR PEMPHIGOID
     Dosage: NO
     Route: 042
     Dates: start: 20150806, end: 20200103
  2. CELLCEPT [Suspect]
     Active Substance: MYCOPHENOLATE MOFETIL\MYCOPHENOLATE MOFETIL HYDROCHLORIDE
     Indication: OCULAR PEMPHIGOID
     Route: 065
     Dates: start: 20141204, end: 20150113
  3. RITUXAN [Suspect]
     Active Substance: RITUXIMAB
     Route: 042
  4. RITUXAN [Suspect]
     Active Substance: RITUXIMAB
     Route: 042
     Dates: start: 20151201, end: 20200103
  5. CYCLOPHOSPHAMIDE. [Concomitant]
     Active Substance: CYCLOPHOSPHAMIDE
     Indication: OCULAR PEMPHIGOID
     Route: 048
     Dates: start: 20150220, end: 20150331

REACTIONS (7)
  - Off label use [Unknown]
  - Dysarthria [Unknown]
  - Hypoaesthesia [Unknown]
  - Progressive multifocal leukoencephalopathy [Not Recovered/Not Resolved]
  - Clumsiness [Unknown]
  - Intentional product use issue [Unknown]
  - Photophobia [Unknown]
